FAERS Safety Report 18706386 (Version 1)
Quarter: 2021Q1

REPORT INFORMATION
  Report Type: Spontaneous
  Country: NL (occurrence: PL)
  Receive Date: 20210106
  Receipt Date: 20210106
  Transmission Date: 20210419
  Serious: Yes (Other)
  Sender: FDA-Public Use
  Company Number: PL-FRESENIUS KABI-FK202014047

PATIENT
  Age: 70 Year
  Sex: Female

DRUGS (10)
  1. FULVESTRANT. [Suspect]
     Active Substance: FULVESTRANT
     Indication: HER2 POSITIVE BREAST CANCER
     Dosage: PHARMACEUTICAL DOSE FORM (FREE TEXT): UNKNOWN?PARENT ROUTE OF ADMINISTRATION (FREE TEXT): UNKNOWN
     Route: 065
     Dates: start: 201705
  2. CARBOPLATIN. [Suspect]
     Active Substance: CARBOPLATIN
     Indication: HER2 POSITIVE BREAST CANCER
     Dosage: 5AUC 1 DAY?PHARMACEUTICAL DOSE FORM (FREE TEXT): UNKNOWN  ?PARENT ROUTE OF ADMINISTRATION (FREE TEXT
     Route: 065
     Dates: start: 20160831, end: 20170520
  3. LETROZOLE. [Suspect]
     Active Substance: LETROZOLE
     Indication: HER2 POSITIVE BREAST CANCER
     Dosage: PHARMACEUTICAL DOSE FORM (FREE TEXT): UNKNOWN?PARENT ROUTE OF ADMINISTRATION (FREE TEXT): UNKNOWN
     Route: 065
     Dates: start: 201911, end: 202006
  4. LAPATINIB [Suspect]
     Active Substance: LAPATINIB
     Indication: HER2 POSITIVE BREAST CANCER
     Dosage: PHARMACEUTICAL DOSE FORM (FREE TEXT): UNKNOWN?PARENT ROUTE OF ADMINISTRATION (FREE TEXT): UNKNOWN
     Route: 065
     Dates: start: 20150306, end: 20160822
  5. TRASTUZUMAB EMTANSINE [Suspect]
     Active Substance: ADO-TRASTUZUMAB EMTANSINE
     Indication: HER2 POSITIVE BREAST CANCER
     Dosage: RECEIVED 9 COURSES?PHARMACEUTICAL DOSE FORM (FREE TEXT): INFUSION, SOLUTION?PARENT ROUTE OF ADMINIST
     Route: 065
     Dates: start: 202002
  6. VINORELBINE TARTRATE. [Suspect]
     Active Substance: VINORELBINE TARTRATE
     Indication: HER2 POSITIVE BREAST CANCER
     Dosage: (1?8 DAYS)?PHARMACEUTICAL DOSE FORM (FREE TEXT): UNKNOWN ?PARENT ROUTE OF ADMINISTRATION (FREE TEXT)
     Route: 065
     Dates: start: 20160831, end: 20170520
  7. PACLITAXEL (MANUFACTURER UNKNOWN) [Suspect]
     Active Substance: PACLITAXEL
     Indication: HER2 POSITIVE BREAST CANCER
     Dosage: PHARMACEUTICAL DOSE FORM (FREE TEXT): UNKNOWN?PARENT ROUTE OF ADMINISTRATION (FREE TEXT): UNKNOWN
     Route: 065
     Dates: start: 20130927
  8. PACLITAXEL (MANUFACTURER UNKNOWN) [Suspect]
     Active Substance: PACLITAXEL
     Dosage: 1?8 DAYS IN CYCLES EVERY 3 WEEKS?PHARMACEUTICAL DOSE FORM (FREE TEXT): UNKNOWN  ?PARENT ROUTE OF ADM
     Route: 065
     Dates: end: 201502
  9. CAPECITABINE. [Suspect]
     Active Substance: CAPECITABINE
     Indication: HER2 POSITIVE BREAST CANCER
     Dosage: PHARMACEUTICAL DOSE FORM (FREE TEXT): TABLET ?PARENT ROUTE OF ADMINISTRATION (FREE TEXT): UNKNOWN
     Route: 048
     Dates: start: 20150306, end: 20160822
  10. TRASTUZUMAB. [Suspect]
     Active Substance: TRASTUZUMAB
     Indication: HER2 POSITIVE BREAST CANCER
     Dosage: AFTER 3 COURSES, TREATMENT WAS DISCONTINUED DUE TO UNACCEPTABLE TOXICITY. 17 MONTHS?PHARMACEUTICAL D
     Route: 042
     Dates: start: 20130927, end: 201502

REACTIONS (10)
  - Cerebral infarction [Unknown]
  - Metastases to liver [Unknown]
  - Polyneuropathy [Unknown]
  - Palmar-plantar erythrodysaesthesia syndrome [Unknown]
  - Haematotoxicity [Unknown]
  - Diarrhoea [Unknown]
  - Liver disorder [Unknown]
  - Metastases to lung [Unknown]
  - Metastases to lung [Unknown]
  - Muscular weakness [Unknown]

NARRATIVE: CASE EVENT DATE: 20150120
